FAERS Safety Report 8035701-X (Version None)
Quarter: 2011Q4

REPORT INFORMATION
  Report Type: 
  Country: None (occurrence: None)
  Receive Date: 20111227
  Receipt Date: 20111219
  Transmission Date: 20120403
  Serious: Yes (Other)
  Sender: FDA-Public Use
  Company Number: US-1189112

PATIENT
  Sex: Male
  Weight: 91.173 kg

DRUGS (8)
  1. BSS [Suspect]
  2. TETRACAINE POLYGYL STERILE OPHTHALMIC SOLUTION [Suspect]
     Indication: CATARACT OPERATION
     Dosage: OPHTHALMIC
     Route: 047
     Dates: start: 20111115, end: 20111115
  3. DUREZOL [Suspect]
     Indication: CATARACT OPERATION
     Dosage: OPHTHALMIC
     Route: 047
  4. NEVANAC [Suspect]
     Indication: CATARACT OPERATION
     Dosage: OPHTHALMIC
     Route: 047
  5. DEXAMETHASONE SODIUM PHOSPHATE [Suspect]
     Indication: CATARACT OPERATION
     Dosage: INTRAOCULAR
     Route: 031
     Dates: start: 20111115, end: 20111115
  6. BSS [Suspect]
     Indication: CATARACT OPERATION
     Dosage: INTRAOCULAR
     Route: 031
     Dates: start: 20111115, end: 20111115
  7. BSS [Suspect]
     Indication: CATARACT OPERATION
     Dosage: INTRAOCULAR
     Route: 031
     Dates: start: 20111115, end: 20111115
  8. VIGAMOX [Suspect]
     Indication: CATARACT OPERATION
     Dosage: OPHTHALMIC
     Route: 047

REACTIONS (1)
  - TOXIC ANTERIOR SEGMENT SYNDROME [None]
